FAERS Safety Report 5997383-8 (Version None)
Quarter: 2008Q4

REPORT INFORMATION
  Report Type: 
  Country: None (occurrence: None)
  Receive Date: 20081212
  Receipt Date: 20081110
  Transmission Date: 20090506
  Serious: No
  Sender: FDA-Public Use
  Company Number: US-ABBOTT-08P-163-0487218-00

PATIENT
  Sex: Female
  Weight: 89.892 kg

DRUGS (8)
  1. HUMIRA [Suspect]
     Indication: RHEUMATOID ARTHRITIS
     Dosage: 40MG EOW
     Route: 058
     Dates: start: 20060101, end: 20070101
  2. METHOTREXATE [Suspect]
     Indication: RHEUMATOID ARTHRITIS
  3. GLYBURIDE [Concomitant]
     Indication: DIABETES MELLITUS
  4. METFORMIN HCL [Concomitant]
     Indication: DIABETES MELLITUS
  5. PILOCARPINE HYDROCHLORIDE [Concomitant]
     Indication: DRY MOUTH
  6. CELECOXIB [Concomitant]
     Indication: RHEUMATOID ARTHRITIS
  7. VICODIN [Concomitant]
     Indication: DRUG USE FOR UNKNOWN INDICATION
  8. LEVOTHYROXINE SODIUM [Concomitant]
     Indication: DRUG USE FOR UNKNOWN INDICATION

REACTIONS (1)
  - HEPATIC ENZYME INCREASED [None]
